FAERS Safety Report 7587308-6 (Version None)
Quarter: 2011Q3

REPORT INFORMATION
  Report Type: 
  Country: None (occurrence: None)
  Receive Date: 20110701
  Receipt Date: 20110629
  Transmission Date: 20111222
  Serious: Yes (Other)
  Sender: FDA-Public Use
  Company Number: DE-MERCK-1106DEU00136

PATIENT
  Age: 70 Year
  Sex: Male
  Weight: 78 kg

DRUGS (4)
  1. LOSARTAN POTASSIUM [Concomitant]
     Indication: HYPERTENSION
     Route: 048
  2. BISOPROLOL [Concomitant]
     Indication: HYPERTENSION
     Route: 048
  3. JANUVIA [Suspect]
     Indication: TYPE 2 DIABETES MELLITUS
     Route: 048
     Dates: start: 20110608, end: 20110623
  4. AMLODIPINE [Concomitant]
     Indication: HYPERTENSION
     Route: 048

REACTIONS (2)
  - SUICIDAL IDEATION [None]
  - HALLUCINATION, AUDITORY [None]
